FAERS Safety Report 9344371 (Version 1)
Quarter: 2013Q2

REPORT INFORMATION
  Report Type: Spontaneous
  Country: JP (occurrence: JP)
  Receive Date: 20130612
  Receipt Date: 20130612
  Transmission Date: 20140414
  Serious: Yes (Other)
  Sender: FDA-Public Use
  Company Number: JP-ASTELLAS-2013JP006557

PATIENT
  Age: 52 Year
  Sex: Male

DRUGS (4)
  1. FUNGUARD [Suspect]
     Indication: BACTERAEMIA
     Route: 065
  2. FUNGUARD [Suspect]
     Indication: FUNGAEMIA
  3. TEICOPLANIN [Concomitant]
     Indication: BACTERAEMIA
     Dosage: UNK
     Route: 065
  4. TEICOPLANIN [Concomitant]
     Indication: FUNGAEMIA

REACTIONS (2)
  - Drug ineffective [Unknown]
  - Arteriovenous graft site infection [Unknown]
